FAERS Safety Report 4567754-5 (Version None)
Quarter: 2005Q1

REPORT INFORMATION
  Report Type: 
  Country: None (occurrence: None)
  Receive Date: 20050127
  Receipt Date: 20041215
  Transmission Date: 20050727
  Serious: No
  Sender: FDA-Public Use
  Company Number: 2004206036FR

PATIENT
  Age: 49 Month
  Sex: Male
  Weight: 72 kg

DRUGS (9)
  1. CYTARABINE [Suspect]
     Indication: ILL-DEFINED DISORDER
     Dosage: 1 GRAM (11 CYCLES), INTRATHECAL
     Route: 037
     Dates: start: 20030917, end: 20040116
  2. DEPO-MEDROL [Suspect]
     Indication: ILL-DEFINED DISORDER
     Dosage: 40 MG(11 CYCLES ), INTRATHECAL
     Route: 037
     Dates: start: 20030917, end: 20040116
  3. IMATINIB (IMATINIB) [Suspect]
     Indication: ILL-DEFINED DISORDER
     Dosage: SEE IMAGE
     Route: 048
     Dates: start: 20030918, end: 20031102
  4. IMATINIB (IMATINIB) [Suspect]
     Indication: ILL-DEFINED DISORDER
     Dosage: SEE IMAGE
     Route: 048
     Dates: start: 20031103, end: 20031123
  5. IMATINIB (IMATINIB) [Suspect]
     Indication: ILL-DEFINED DISORDER
     Dosage: SEE IMAGE
     Route: 048
     Dates: start: 20031124, end: 20031214
  6. IMATINIB (IMATINIB) [Suspect]
     Indication: ILL-DEFINED DISORDER
     Dosage: SEE IMAGE
     Route: 048
     Dates: start: 20040108, end: 20040128
  7. IMATINIB (IMATINIB) [Suspect]
     Indication: ILL-DEFINED DISORDER
     Dosage: SEE IMAGE
     Route: 048
     Dates: start: 20040129, end: 20040211
  8. METHOTREXATE [Suspect]
     Indication: ILL-DEFINED DISORDER
     Dosage: 5 MG (11 CYCLES), INTRACHECAL
  9. VINCRISTINE SULFATE [Suspect]
     Dosage: 2 MG (CYCLIC)

REACTIONS (11)
  - ACUTE LYMPHOCYTIC LEUKAEMIA [None]
  - AREFLEXIA [None]
  - DYSSTASIA [None]
  - LABORATORY TEST ABNORMAL [None]
  - NEUROPATHY PERIPHERAL [None]
  - OEDEMA PERIPHERAL [None]
  - PARAESTHESIA [None]
  - POLYNEUROPATHY [None]
  - THROMBOCYTOPENIA [None]
  - VERTIGO [None]
  - WEIGHT INCREASED [None]
